FAERS Safety Report 7006408-2 (Version None)
Quarter: 2010Q3

REPORT INFORMATION
  Report Type: 
  Country: None (occurrence: None)
  Receive Date: 20100921
  Receipt Date: 20100914
  Transmission Date: 20110219
  Serious: Yes (Hospitalization, Other)
  Sender: FDA-Public Use
  Company Number: IN-AMGEN-QUU430401

PATIENT
  Age: 58 Year
  Sex: Male
  Weight: 63 kg

DRUGS (2)
  1. NEUPOGEN [Suspect]
     Indication: CHEMOTHERAPY
  2. UNSPECIFIED ANTINEOPLASTIC AGENT [Concomitant]

REACTIONS (6)
  - ANAEMIA [None]
  - DYSPNOEA [None]
  - FEBRILE NEUTROPENIA [None]
  - HAEMOPTYSIS [None]
  - NECROSIS [None]
  - WEIGHT DECREASED [None]
